FAERS Safety Report 4690911-4 (Version None)
Quarter: 2005Q2

REPORT INFORMATION
  Report Type: 
  Country: None (occurrence: None)
  Receive Date: 20050613
  Receipt Date: 20050607
  Transmission Date: 20051028
  Serious: Yes (Life-Threatening, Hospitalization)
  Sender: FDA-Public Use
  Company Number: 200510930BWH

PATIENT
  Age: 85 Year
  Sex: Male

DRUGS (9)
  1. AVELOX [Suspect]
     Indication: BRONCHITIS
     Dosage: 400 MG , QD, ORAL
     Route: 048
     Dates: start: 20050301
  2. AVELOX [Suspect]
     Indication: CHRONIC OBSTRUCTIVE AIRWAYS DISEASE EXACERBATED
     Dosage: 400 MG , QD, ORAL
     Route: 048
     Dates: start: 20050301
  3. AVELOX [Suspect]
     Indication: PNEUMONIA
     Dosage: 400 MG , QD, ORAL
     Route: 048
     Dates: start: 20050301
  4. LISINOPRIL [Concomitant]
  5. ASPIRIN [Concomitant]
  6. WARFARIN SODUM [Concomitant]
  7. METROPROLOL [Concomitant]
  8. DILANTIN [Concomitant]
  9. DETROL [Concomitant]

REACTIONS (6)
  - AMNESIA [None]
  - CONTUSION [None]
  - DIZZINESS [None]
  - FALL [None]
  - LOSS OF CONSCIOUSNESS [None]
  - SCAR [None]
